FAERS Safety Report 7888097-8 (Version None)
Quarter: 2011Q4

REPORT INFORMATION
  Report Type: 
  Country: None (occurrence: None)
  Receive Date: 20111103
  Receipt Date: 20111024
  Transmission Date: 20120403
  Serious: Yes (Other)
  Sender: FDA-Public Use
  Company Number: DE-BRISTOL-MYERS SQUIBB COMPANY-16106916

PATIENT
  Age: 74 Year
  Sex: Male
  Weight: 84 kg

DRUGS (5)
  1. MICARDIS [Concomitant]
     Indication: BLOOD PRESSURE INCREASED
     Dosage: TABS
     Dates: start: 20070212
  2. HYDROCHLOROTHIAZIDE [Concomitant]
     Indication: BLOOD PRESSURE INCREASED
     Dates: start: 20090512
  3. SIMVASTATIN [Concomitant]
     Indication: HYPERLIPIDAEMIA
     Dosage: TABS
     Dates: start: 20070207
  4. SIMVASTATIN [Concomitant]
     Indication: MYOCARDIAL INFARCTION
     Dosage: TABS
     Dates: start: 20070207
  5. COUMADIN [Suspect]
     Indication: MYOCARDIAL INFARCTION
     Dosage: TABS.
     Dates: start: 20070207

REACTIONS (3)
  - INTERNATIONAL NORMALISED RATIO FLUCTUATION [None]
  - ANGINA PECTORIS [None]
  - DYSPNOEA [None]
